FAERS Safety Report 10004608 (Version 2)
Quarter: 2014Q2

REPORT INFORMATION
  Report Type: Spontaneous
  Country: US (occurrence: US)
  Receive Date: 20140312
  Receipt Date: 20140611
  Transmission Date: 20141212
  Serious: No
  Sender: FDA-Public Use
  Company Number: US-INCYTE CORPORATION-2013IN003031

PATIENT
  Sex: Female

DRUGS (9)
  1. JAKAFI [Suspect]
     Indication: MYELOFIBROSIS
     Dosage: 10 MG, BID
     Route: 048
     Dates: start: 201305
  2. ASPIRIN [Concomitant]
     Dosage: 81 MG, QD
  3. LIPITOR [Concomitant]
     Dosage: 20 MG, BID
  4. MAXIDE [Concomitant]
     Dosage: 325/25 MG QD
  5. PROAIR                             /00139502/ [Concomitant]
     Dosage: PRN
  6. SERTRALINE [Concomitant]
     Dosage: 100 UNK, QD
  7. SPIRIVA [Concomitant]
     Dosage: 1 INHALATION QD
  8. VITAMIN B12                        /00056201/ [Concomitant]
  9. VITAMIN D                          /00107901/ [Concomitant]

REACTIONS (2)
  - Incontinence [Unknown]
  - Urinary tract infection [Unknown]
